FAERS Safety Report 13753859 (Version 1)
Quarter: 2017Q3

REPORT INFORMATION
  Report Type: Spontaneous
  Country: US (occurrence: US)
  Receive Date: 20170714
  Receipt Date: 20170714
  Transmission Date: 20171127
  Serious: Yes (Disabling)
  Sender: FDA-Public Use
  Company Number: None

PATIENT
  Age: 34 Year
  Sex: Female
  Weight: 65.25 kg

DRUGS (2)
  1. EPSON SALT [Concomitant]
  2. XANAX [Suspect]
     Active Substance: ALPRAZOLAM
     Indication: ANXIETY
     Dosage: ?          QUANTITY:60 TABLET(S);?
     Route: 048

REACTIONS (14)
  - Suicidal ideation [None]
  - Pain [None]
  - Anxiety [None]
  - Paraesthesia [None]
  - Impaired work ability [None]
  - Impaired self-care [None]
  - Weight decreased [None]
  - Diarrhoea [None]
  - Pain in extremity [None]
  - Drug tolerance [None]
  - Chest pain [None]
  - Loss of personal independence in daily activities [None]
  - Drug withdrawal syndrome [None]
  - Abdominal pain upper [None]

NARRATIVE: CASE EVENT DATE: 20130101
